FAERS Safety Report 14919795 (Version 2)
Quarter: 2018Q2

REPORT INFORMATION
  Report Type: Spontaneous
  Country: US (occurrence: US)
  Receive Date: 20180521
  Receipt Date: 20180627
  Transmission Date: 20180711
  Serious: No
  Sender: FDA-Public Use
  Company Number: US-GLAXOSMITHKLINE-US2018087687

PATIENT
  Age: 54 Year
  Sex: Female

DRUGS (6)
  1. LINZESS [Concomitant]
     Active Substance: LINACLOTIDE
  2. ARMOUR THYROID [Concomitant]
     Active Substance: THYROID, PORCINE
  3. OMEPRAZOLE. [Concomitant]
     Active Substance: OMEPRAZOLE
  4. BREO ELLIPTA [Suspect]
     Active Substance: FLUTICASONE FUROATE\VILANTEROL TRIFENATATE
     Indication: ASTHMA
     Dosage: 1 PUFF(S), QD
     Route: 055
     Dates: start: 20180511
  5. DETROL [Concomitant]
     Active Substance: TOLTERODINE TARTRATE
  6. MESTINON [Concomitant]
     Active Substance: PYRIDOSTIGMINE BROMIDE

REACTIONS (4)
  - Product quality issue [Unknown]
  - Dyspnoea [Not Recovered/Not Resolved]
  - Nausea [Unknown]
  - Hypopnoea [Not Recovered/Not Resolved]

NARRATIVE: CASE EVENT DATE: 20180515
